FAERS Safety Report 8499258-1 (Version None)
Quarter: 2012Q3

REPORT INFORMATION
  Report Type: 
  Country: None (occurrence: None)
  Receive Date: 20120710
  Receipt Date: 20120705
  Transmission Date: 20120928
  Serious: Yes (Hospitalization, Other)
  Sender: FDA-Public Use
  Company Number: PHHY2012MX053928

PATIENT
  Sex: Female

DRUGS (4)
  1. LINAGLIPTIN [Concomitant]
     Indication: DIABETES MELLITUS
     Dosage: 5 MG, DAILY
  2. DIOVAN [Suspect]
     Indication: HYPERTENSION
     Dosage: 1 TABLET (160 MG) DAILY
     Route: 048
     Dates: start: 20120122, end: 20120509
  3. DAFLON (DIOSMIN/HESPERIDIN) [Concomitant]
     Indication: CARDIOVASCULAR DISORDER
     Dosage: 2 TABLETS (500 MG) DAILY
  4. METOPROLOL SUCCINATE [Concomitant]
     Indication: HYPERTENSION
     Dosage: 0.5 TABLET, UNK
     Dates: start: 19920101

REACTIONS (5)
  - BLOOD PRESSURE FLUCTUATION [None]
  - GAIT DISTURBANCE [None]
  - BLOOD GLUCOSE INCREASED [None]
  - FALL [None]
  - TENDON RUPTURE [None]
